FAERS Safety Report 25124570 (Version 2)
Quarter: 2025Q1

REPORT INFORMATION
  Report Type: Spontaneous
  Country: FR (occurrence: FR)
  Receive Date: 20250326
  Receipt Date: 20250328
  Transmission Date: 20250409
  Serious: Yes (Life-Threatening)
  Sender: SANOFI AVENTIS
  Company Number: None

PATIENT
  Age: 75 Year
  Sex: Male
  Weight: 180 kg

DRUGS (5)
  1. LANTUS [Interacting]
     Active Substance: INSULIN GLARGINE
     Indication: Diabetes mellitus
     Dosage: 38.000[IU] INTERNATION UNIT(S) QD
     Route: 058
     Dates: end: 20250227
  2. INSULIN ASPART [Interacting]
     Active Substance: INSULIN ASPART
     Indication: Diabetes mellitus
     Dosage: 74 IU, QD
     Route: 058
  3. ATORVASTATIN [Concomitant]
     Active Substance: ATORVASTATIN
     Indication: Dyslipidaemia
     Dosage: 20.000MG QD
     Route: 048
  4. IRBESARTAN [Concomitant]
     Active Substance: IRBESARTAN
     Dosage: 150.000MG QD
     Route: 048
  5. BISOPROLOL FUMARATE [Concomitant]
     Active Substance: BISOPROLOL FUMARATE
     Dosage: 5.000MG QD
     Route: 048
     Dates: end: 20250227

REACTIONS (2)
  - Drug interaction [Recovered/Resolved]
  - Hypoglycaemia [Recovered/Resolved]

NARRATIVE: CASE EVENT DATE: 20250227
